FAERS Safety Report 8772802 (Version 2)
Quarter: 2013Q4

REPORT INFORMATION
  Report Type: Spontaneous
  Country: US (occurrence: US)
  Receive Date: 20120907
  Receipt Date: 20131101
  Transmission Date: 20140711
  Serious: No
  Sender: FDA-Public Use
  Company Number: US-009507513-1208USA009979

PATIENT
  Age: 2 Year
  Sex: Female

DRUGS (2)
  1. CLARITIN ORAL SOLUTION [Suspect]
     Indication: PRODUCT USED FOR UNKNOWN INDICATION
     Dosage: 1 DF, ONCE
     Dates: start: 201208, end: 201208
  2. CLARITIN ORAL SOLUTION [Suspect]
     Dosage: 1 DF, ONCE
     Dates: start: 201208, end: 201208

REACTIONS (1)
  - Accidental overdose [Unknown]
